FAERS Safety Report 23396918 (Version 7)
Quarter: 2024Q2

REPORT INFORMATION
  Report Type: Spontaneous
  Country: US (occurrence: US)
  Receive Date: 20240112
  Receipt Date: 20240531
  Transmission Date: 20240715
  Serious: No
  Sender: FDA-Public Use
  Company Number: US-PFIZER INC-202300396840

PATIENT
  Age: 52 Year
  Sex: Male
  Weight: 89.81 kg

DRUGS (1)
  1. GENOTROPIN [Suspect]
     Active Substance: SOMATROPIN
     Indication: Pituitary tumour
     Dosage: 1 MG, DAILY
     Dates: start: 201803

REACTIONS (4)
  - Off label use [Unknown]
  - Product dose omission issue [Unknown]
  - Device delivery system issue [Unknown]
  - Device information output issue [Unknown]
